FAERS Safety Report 25379324 (Version 1)
Quarter: 2025Q2

REPORT INFORMATION
  Report Type: Report from Study
  Country: ZA (occurrence: ZA)
  Receive Date: 20250530
  Receipt Date: 20250530
  Transmission Date: 20250716
  Serious: Yes (Hospitalization)
  Sender: ALEXION PHARMACEUTICALS
  Company Number: ZA-AstraZeneca-CH-00878331A

PATIENT
  Age: 67 Year

DRUGS (4)
  1. DAPAGLIFLOZIN [Suspect]
     Active Substance: DAPAGLIFLOZIN
     Indication: Diabetes mellitus
  2. METFORMIN HYDROCHLORIDE [Concomitant]
     Active Substance: METFORMIN HYDROCHLORIDE
     Indication: Diabetes mellitus
  3. INSULIN ASPART\INSULIN DEGLUDEC [Concomitant]
     Active Substance: INSULIN ASPART\INSULIN DEGLUDEC
     Indication: Diabetes mellitus
  4. Mezibe plus [Concomitant]
     Indication: Hyperlipidaemia

REACTIONS (3)
  - Dyspnoea [Unknown]
  - Chest pain [Unknown]
  - Palpitations [Unknown]
